FAERS Safety Report 9148444 (Version 5)
Quarter: 2014Q2

REPORT INFORMATION
  Report Type: Report from Study
  Country: AU (occurrence: AU)
  Receive Date: 20130308
  Receipt Date: 20140409
  Transmission Date: 20141212
  Serious: Yes (Other)
  Sender: FDA-Public Use
  Company Number: PHHY2013AU022635

PATIENT
  Age: 79 Year
  Sex: Female

DRUGS (5)
  1. ACLASTA [Suspect]
     Dosage: 5 MG, UNK
     Route: 042
     Dates: start: 20100223
  2. ACLASTA [Suspect]
     Dosage: 5 MG, UNK
     Route: 042
     Dates: start: 20110222
  3. ACLASTA [Suspect]
     Dosage: 5 MG, UNK
     Route: 042
     Dates: start: 20120305
  4. ACLASTA [Suspect]
     Dosage: 5 MG, UNK
     Route: 042
     Dates: start: 20130306
  5. ACLASTA [Suspect]
     Dosage: 5 MG,
     Route: 042
     Dates: start: 20140310

REACTIONS (4)
  - Diverticular perforation [Recovered/Resolved]
  - Uterine injury [Recovered/Resolved]
  - Bladder injury [Recovered/Resolved]
  - Gastrointestinal injury [Recovered/Resolved]
